FAERS Safety Report 13631120 (Version 1)
Quarter: 2017Q2

REPORT INFORMATION
  Report Type: Spontaneous
  Country: US (occurrence: US)
  Receive Date: 20170531
  Receipt Date: 20170531
  Transmission Date: 20170830
  Serious: No
  Sender: FDA-Public Use
  Company Number: US-ASTELLAS-1352987

PATIENT
  Sex: Female

DRUGS (3)
  1. LEVOTHYROXINE SODIUM. [Concomitant]
     Active Substance: LEVOTHYROXINE SODIUM
  2. TARCEVA [Suspect]
     Active Substance: ERLOTINIB HYDROCHLORIDE
     Indication: CARCINOID TUMOUR PULMONARY
     Dosage: FREQUENCY: DAILY
     Route: 048
  3. CIPROFLOXACIN HCL [Concomitant]
     Active Substance: CIPROFLOXACIN HYDROCHLORIDE

REACTIONS (2)
  - Dysgeusia [Unknown]
  - Rash [Unknown]
